FAERS Safety Report 20848442 (Version 1)
Quarter: 2022Q2

REPORT INFORMATION
  Report Type: Report from Study
  Country: US (occurrence: None)
  Receive Date: 20220519
  Receipt Date: 20220519
  Transmission Date: 20220721
  Serious: Yes (Other)
  Sender: FDA-Public Use
  Company Number: US-ROCHE-3094670

PATIENT
  Age: 81 Year
  Sex: Male
  Weight: 81.2 kg

DRUGS (2)
  1. OBINUTUZUMAB [Suspect]
     Active Substance: OBINUTUZUMAB
     Indication: Chronic lymphocytic leukaemia
     Dosage: ON C1D1, 900 MG IV ON C1D2, 1000 MG IV ON C1D8 + C1D15, C2-6D1?LAST DOSE ADMINISTERED ON: 03/FEB/202
     Route: 042
     Dates: start: 20210916
  2. IBRUTINIB [Suspect]
     Active Substance: IBRUTINIB
     Indication: Chronic lymphocytic leukaemia
     Dosage: FOR 15 CYCLES?LAST DOSE ADMINISTERED ON: 03/FEB/2022
     Route: 048
     Dates: start: 20210916

REACTIONS (1)
  - Basal cell carcinoma [Recovered/Resolved]

NARRATIVE: CASE EVENT DATE: 20220204
